FAERS Safety Report 5962536-1 (Version None)
Quarter: 2008Q4

REPORT INFORMATION
  Report Type: 
  Country: None (occurrence: None)
  Receive Date: 20081121
  Receipt Date: 20081111
  Transmission Date: 20090506
  Serious: Yes (Other)
  Sender: FDA-Public Use
  Company Number: US-PFIZER INC-2008095592

PATIENT
  Age: 2 Month
  Sex: Male
  Weight: 15 kg

DRUGS (1)
  1. VIAGRA [Suspect]
     Indication: PULMONARY HYPERTENSION

REACTIONS (2)
  - HEPATIC FAILURE [None]
  - RENAL FAILURE [None]
